FAERS Safety Report 6121399-4 (Version None)
Quarter: 2009Q1

REPORT INFORMATION
  Report Type: 
  Country: None (occurrence: None)
  Receive Date: 20090313
  Receipt Date: 20090313
  Transmission Date: 20090719
  Serious: Yes (Other)
  Sender: FDA-Public Use
  Company Number: None

PATIENT
  Age: 56 Year
  Sex: Male
  Weight: 68.0396 kg

DRUGS (2)
  1. CLINDAMYCIN HCL [Suspect]
     Indication: ENDODONTIC PROCEDURE
     Dosage: 300MG EVERY 6 HOURS PO
     Route: 048
     Dates: start: 20090305, end: 20090312
  2. CLINDAMYCIN HCL [Suspect]
     Indication: TOOTH INFECTION
     Dosage: 300MG EVERY 6 HOURS PO
     Route: 048
     Dates: start: 20090305, end: 20090312

REACTIONS (4)
  - DIZZINESS [None]
  - NAUSEA [None]
  - THROAT TIGHTNESS [None]
  - VISION BLURRED [None]
